FAERS Safety Report 8299118-5 (Version None)
Quarter: 2012Q2

REPORT INFORMATION
  Report Type: 
  Country: None (occurrence: None)
  Receive Date: 20120416
  Receipt Date: 20120416
  Transmission Date: 20120825
  Serious: No
  Sender: FDA-Public Use
  Company Number: None

PATIENT
  Age: 46 Year
  Sex: Male

DRUGS (1)
  1. OXALIPLATIN [Suspect]
     Dates: end: 20100401

REACTIONS (9)
  - LIVER INJURY [None]
  - HEPATIC FAILURE [None]
  - ENCEPHALOPATHY [None]
  - LYMPHADENOPATHY [None]
  - CHOLESTASIS [None]
  - HEPATIC STEATOSIS [None]
  - FATIGUE [None]
  - HEPATOMEGALY [None]
  - ASCITES [None]
